FAERS Safety Report 4863364-0 (Version None)
Quarter: 2005Q4

REPORT INFORMATION
  Report Type: 
  Country: None (occurrence: None)
  Receive Date: 20051222
  Receipt Date: 20041001
  Transmission Date: 20060501
  Serious: No
  Sender: FDA-Public Use
  Company Number: US-GLAXOSMITHKLINE-A0528113A

PATIENT
  Age: 62 Year
  Sex: Female

DRUGS (5)
  1. FLONASE [Suspect]
     Dosage: 2SPR PER DAY
     Route: 045
     Dates: start: 19970101
  2. ADVAIR DISKUS 250/50 [Concomitant]
     Indication: ASTHMA
     Dosage: 1PUFF PER DAY
     Route: 055
     Dates: start: 20040701
  3. DIOVAN [Concomitant]
  4. ASPIRIN [Concomitant]
  5. ASTHMA MEDICATION [Concomitant]

REACTIONS (1)
  - EPISTAXIS [None]
